FAERS Safety Report 11062280 (Version 5)
Quarter: 2016Q4

REPORT INFORMATION
  Report Type: Report from Study
  Country: US (occurrence: US)
  Receive Date: 20150424
  Receipt Date: 20161028
  Transmission Date: 20170206
  Serious: Yes (Hospitalization, Other)
  Sender: FDA-Public Use
  Company Number: US-SA-2015SA006445

PATIENT
  Age: 63 Year
  Sex: Female

DRUGS (4)
  1. LEMTRADA [Suspect]
     Active Substance: ALEMTUZUMAB
     Indication: MULTIPLE SCLEROSIS
     Route: 041
     Dates: start: 20150105, end: 20150109
  2. ADDERALL [Concomitant]
     Active Substance: AMPHETAMINE ASPARTATE\AMPHETAMINE SULFATE\DEXTROAMPHETAMINE SACCHARATE\DEXTROAMPHETAMINE SULFATE
     Dates: end: 20150102
  3. JANUVIA [Concomitant]
     Active Substance: SITAGLIPTIN PHOSPHATE
  4. LEMTRADA [Suspect]
     Active Substance: ALEMTUZUMAB
     Indication: MULTIPLE SCLEROSIS
     Route: 041
     Dates: start: 20160111, end: 20160113

REACTIONS (47)
  - Cataract [Not Recovered/Not Resolved]
  - Blood potassium decreased [Unknown]
  - Haemorrhoidal haemorrhage [Recovered/Resolved]
  - Wheezing [Unknown]
  - Blood glucose abnormal [Unknown]
  - Feeling abnormal [Not Recovered/Not Resolved]
  - Asthenia [Unknown]
  - Muscle spasms [Unknown]
  - Bronchitis [Unknown]
  - Pain in extremity [Not Recovered/Not Resolved]
  - Dehydration [Unknown]
  - Diverticulum [Unknown]
  - Urinary incontinence [Unknown]
  - Lymphadenopathy [Unknown]
  - Blood pressure increased [Unknown]
  - Nausea [Unknown]
  - Cough [Unknown]
  - Tremor [Unknown]
  - Neoplasm skin [Not Recovered/Not Resolved]
  - Fatigue [Unknown]
  - Haematochezia [Recovered/Resolved]
  - Gastrointestinal haemorrhage [Recovered/Resolved]
  - Diarrhoea [Unknown]
  - Rectal haemorrhage [Recovered/Resolved]
  - Feeling abnormal [Unknown]
  - Influenza [Recovered/Resolved]
  - Gastric ulcer [Unknown]
  - Duodenal ulcer [Unknown]
  - Vomiting [Unknown]
  - Fall [Recovering/Resolving]
  - Feeling hot [Unknown]
  - Asthma [Recovered/Resolved]
  - Alopecia [Recovering/Resolving]
  - Dysphonia [Not Recovered/Not Resolved]
  - Weight increased [Not Recovered/Not Resolved]
  - Anti A antibody positive [Not Recovered/Not Resolved]
  - Back pain [Unknown]
  - Paraesthesia [Unknown]
  - Haematemesis [Recovered/Resolved]
  - Gastrointestinal viral infection [Recovered/Resolved]
  - Immune system disorder [Not Recovered/Not Resolved]
  - Faeces discoloured [Unknown]
  - Hypoaesthesia [Unknown]
  - Urinary tract infection [Recovered/Resolved]
  - Back pain [Not Recovered/Not Resolved]
  - Anaemia [Unknown]
  - Mood altered [Unknown]

NARRATIVE: CASE EVENT DATE: 2015
